FAERS Safety Report 9880704 (Version 1)
Quarter: 2014Q1

REPORT INFORMATION
  Report Type: Spontaneous
  Country: US (occurrence: None)
  Receive Date: 20140206
  Receipt Date: 20140206
  Transmission Date: 20141002
  Serious: No
  Sender: FDA-Public Use
  Company Number: None

PATIENT
  Age: 34 Year
  Sex: Female
  Weight: 107.6 kg

DRUGS (11)
  1. ZITHROMAX [Suspect]
     Dosage: 500MG IN NS 250ML
     Dates: start: 20140202
  2. ALBUTEROL [Concomitant]
  3. ATROVENT [Concomitant]
  4. GLUCOPHAGO [Concomitant]
  5. LOVENOX [Concomitant]
  6. NICODERM [Concomitant]
  7. NOVOLOG [Concomitant]
  8. PULMICORT [Concomitant]
  9. SOLU-MEDROL [Concomitant]
  10. TYLENOL [Concomitant]
  11. ZOLOFT [Concomitant]

REACTIONS (5)
  - Erythema [None]
  - Paraesthesia [None]
  - Feeling hot [None]
  - Eye irritation [None]
  - Paraesthesia oral [None]
